FAERS Safety Report 19550031 (Version 1)
Quarter: 2021Q3

REPORT INFORMATION
  Report Type: Spontaneous
  Country: US (occurrence: US)
  Receive Date: 20210715
  Receipt Date: 20210715
  Transmission Date: 20211014
  Serious: No
  Sender: FDA-Public Use
  Company Number: US-SA-2021SA231073

PATIENT
  Sex: Female

DRUGS (1)
  1. DUPIXENT [Suspect]
     Active Substance: DUPILUMAB
     Indication: DERMATITIS ATOPIC
     Dosage: 300 MG, QOW
     Route: 065
     Dates: start: 201910

REACTIONS (7)
  - Stress [Unknown]
  - Conjunctivitis [Unknown]
  - Sneezing [Unknown]
  - Eye disorder [Unknown]
  - Lacrimation increased [Recovering/Resolving]
  - Skin disorder [Unknown]
  - Product dose omission issue [Unknown]
